FAERS Safety Report 10142057 (Version 1)
Quarter: 2014Q2

REPORT INFORMATION
  Report Type: Spontaneous
  Country: US (occurrence: US)
  Receive Date: 20140429
  Receipt Date: 20140429
  Transmission Date: 20141212
  Serious: Yes (Hospitalization, Other)
  Sender: FDA-Public Use
  Company Number: US-PFIZER INC-2014116384

PATIENT
  Age: 41 Year
  Sex: Female

DRUGS (2)
  1. ZITHROMAX [Suspect]
     Indication: BRONCHITIS
     Dosage: 500 MG, UNK
     Route: 048
     Dates: start: 20111015, end: 20111015
  2. ZITHROMAX [Suspect]
     Dosage: 250 MG, 1X/DAY
     Route: 048
     Dates: start: 20111016, end: 20111019

REACTIONS (14)
  - Cardiac failure congestive [Unknown]
  - Chest pain [Unknown]
  - Abdominal pain [Unknown]
  - Discomfort [Unknown]
  - Pulmonary congestion [Unknown]
  - Dyspnoea [Unknown]
  - Dizziness [Unknown]
  - Fatigue [Unknown]
  - Insomnia [Unknown]
  - Post-traumatic stress disorder [Unknown]
  - Depression [Unknown]
  - Fear [Unknown]
  - Anxiety [Unknown]
  - Oedema peripheral [Unknown]
